FAERS Safety Report 8613320 (Version 2)
Quarter: 2013Q2

REPORT INFORMATION
  Report Type: Spontaneous
  Country: JP (occurrence: JP)
  Receive Date: 20120613
  Receipt Date: 20130424
  Transmission Date: 20140414
  Serious: Yes (Death)
  Sender: FDA-Public Use
  Company Number: PHHY2012JP049721

PATIENT
  Age: 53 Year
  Sex: Female

DRUGS (3)
  1. RIFAMPICIN [Suspect]
     Indication: ATYPICAL MYCOBACTERIAL INFECTION
  2. ISONIAZID [Suspect]
     Indication: ATYPICAL MYCOBACTERIAL INFECTION
  3. ETHAMBUTOL HYDROCHLORIDE [Suspect]
     Indication: ATYPICAL MYCOBACTERIAL INFECTION

REACTIONS (3)
  - Atypical mycobacterial infection [Fatal]
  - Disease progression [Fatal]
  - Drug ineffective [Unknown]
